FAERS Safety Report 5835131-2 (Version None)
Quarter: 2008Q3

REPORT INFORMATION
  Report Type: 
  Country: None (occurrence: None)
  Receive Date: 20080806
  Receipt Date: 20080728
  Transmission Date: 20090109
  Serious: Yes (Hospitalization)
  Sender: FDA-Public Use
  Company Number: GB-WYE-H05365708

PATIENT
  Sex: Male

DRUGS (5)
  1. AMIODARONE HCL [Suspect]
     Indication: ATRIAL FIBRILLATION
     Route: 048
     Dates: start: 20060101, end: 20080101
  2. BUMETANIDE [Concomitant]
     Indication: CARDIAC FAILURE
     Route: 065
  3. LACTULOSE [Concomitant]
     Indication: CONSTIPATION
     Dosage: 10 ML PRN
     Route: 065
  4. ACETYLSALICYLIC ACID SRT [Concomitant]
     Indication: ATRIAL FIBRILLATION
     Route: 048
  5. ACETYLSALICYLIC ACID SRT [Concomitant]
     Indication: CARDIAC FAILURE

REACTIONS (3)
  - ANAEMIA MACROCYTIC [None]
  - HYPOTHYROIDISM [None]
  - MELAENA [None]
